FAERS Safety Report 10598823 (Version 2)
Quarter: 2014Q4

REPORT INFORMATION
  Report Type: Spontaneous
  Country: DE (occurrence: DE)
  Receive Date: 20141121
  Receipt Date: 20141121
  Transmission Date: 20150529
  Serious: Yes (Hospitalization)
  Sender: FDA-Public Use
  Company Number: DE-BRISTOL-MYERS SQUIBB COMPANY-21436191

PATIENT
  Age: 54 Year
  Sex: Male
  Weight: 60 kg

DRUGS (5)
  1. ALLOPURINOL. [Concomitant]
     Active Substance: ALLOPURINOL
  2. PREDNISOLONE. [Concomitant]
     Active Substance: PREDNISOLONE
  3. VOLTAREN [Concomitant]
     Active Substance: DICLOFENAC SODIUM
  4. SPRYCEL [Suspect]
     Active Substance: DASATINIB
     Indication: CHRONIC MYELOID LEUKAEMIA
     Route: 048
     Dates: start: 20140911
  5. HYDROXYUREA. [Suspect]
     Active Substance: HYDROXYUREA
     Indication: CHRONIC MYELOID LEUKAEMIA
     Dates: start: 20140911, end: 20140918

REACTIONS (4)
  - Gouty arthritis [Recovered/Resolved]
  - Hyperuricaemia [Recovered/Resolved]
  - Myalgia [Unknown]
  - Off label use [Unknown]

NARRATIVE: CASE EVENT DATE: 20140925
